FAERS Safety Report 9661506 (Version 2)
Quarter: 2013Q4

REPORT INFORMATION
  Report Type: Spontaneous
  Country: US (occurrence: US)
  Receive Date: 20131031
  Receipt Date: 20131031
  Transmission Date: 20140711
  Serious: No
  Sender: FDA-Public Use
  Company Number: US-PURDUE-USA-2010-0052974

PATIENT
  Age: 34 Year
  Sex: Female

DRUGS (4)
  1. OXYCONTIN (NDA 22-272) [Suspect]
     Indication: MUSCULOSKELETAL DISCOMFORT
     Dosage: 80 MG, TID
     Dates: start: 2005
  2. OXYCONTIN (NDA 22-272) [Suspect]
     Indication: BACK PAIN
  3. MORPHINE SULFATE (SIMILAR TO NDA 19-516) [Concomitant]
     Indication: MUSCULOSKELETAL DISCOMFORT
     Dosage: UNK
     Route: 037
     Dates: start: 2005
  4. MORPHINE SULFATE (SIMILAR TO NDA 19-516) [Concomitant]
     Indication: BACK PAIN

REACTIONS (4)
  - Drug effect decreased [Unknown]
  - Drug ineffective [Unknown]
  - Abdominal pain upper [Unknown]
  - Rash [Unknown]
